FAERS Safety Report 21036505 (Version 2)
Quarter: 2023Q1

REPORT INFORMATION
  Report Type: Spontaneous
  Country: US (occurrence: US)
  Receive Date: 20220702
  Receipt Date: 20230206
  Transmission Date: 20230418
  Serious: Yes (Other)
  Sender: FDA-Public Use
  Company Number: US-BRISTOL-MYERS SQUIBB COMPANY-2022-066407

PATIENT
  Age: 69 Year
  Sex: Female

DRUGS (2)
  1. POMALYST [Suspect]
     Active Substance: POMALIDOMIDE
     Indication: Plasma cell myeloma
     Route: 048
     Dates: start: 202205
  2. POMALYST [Suspect]
     Active Substance: POMALIDOMIDE
     Dosage: ONCE DAILY
     Route: 048
     Dates: start: 20220524

REACTIONS (8)
  - Rash [Unknown]
  - Palpitations [Unknown]
  - Fatigue [Unknown]
  - Arthralgia [Unknown]
  - COVID-19 [Unknown]
  - Infection [Unknown]
  - Atrial fibrillation [Unknown]
  - Hypoaesthesia [Unknown]
